FAERS Safety Report 8770370 (Version 1)
Quarter: 2012Q4

REPORT INFORMATION
  Report Type: 
  Country: JP (occurrence: JP)
  Receive Date: 20120906
  Receipt Date: 20120906
  Transmission Date: 20130627
  Serious: Yes (Hospitalization)
  Sender: FDA-Public Use
  Company Number: JP-B.I. PHARMACEUTICALS,INC./RIDGEFIELD-2012-BP-21275NB

PATIENT
  Age: 85 Year
  Sex: Female

DRUGS (3)
  1. PRAZAXA [Suspect]
     Indication: EMBOLIC STROKE
     Dosage: 75 mg
     Route: 048
     Dates: end: 20120830
  2. PLAVIX [Concomitant]
     Dosage: 75 mg
     Route: 065
  3. OXYGEN [Concomitant]
     Indication: SLEEP APNOEA SYNDROME
     Dosage: NR
     Route: 065

REACTIONS (2)
  - Decreased appetite [Unknown]
  - Dehydration [Unknown]
